FAERS Safety Report 25499738 (Version 2)
Quarter: 2025Q3

REPORT INFORMATION
  Report Type: Spontaneous
  Country: CN (occurrence: CN)
  Receive Date: 20250701
  Receipt Date: 20250915
  Transmission Date: 20251021
  Serious: Yes (Hospitalization)
  Sender: MERCK SHARP & DOHME LLC
  Company Number: CN-009507513-2300075

PATIENT
  Age: 34 Year
  Sex: Female
  Weight: 49 kg

DRUGS (4)
  1. KEYTRUDA [Suspect]
     Active Substance: PEMBROLIZUMAB
     Indication: Lung neoplasm malignant
     Route: 041
     Dates: start: 20250610, end: 20250610
  2. PEGFILGRASTIM [Concomitant]
     Active Substance: PEGFILGRASTIM
     Indication: Chemotherapy side effect prophylaxis
     Dates: start: 20250611
  3. CYCLOPHOSPHAMIDE [Suspect]
     Active Substance: CYCLOPHOSPHAMIDE
     Indication: Lung neoplasm malignant
     Dates: start: 20250610
  4. EPIRUBICIN [Suspect]
     Active Substance: EPIRUBICIN
     Indication: Lung neoplasm malignant
     Dates: start: 20250610

REACTIONS (3)
  - Myelosuppression [Recovering/Resolving]
  - Abdominal distension [Recovering/Resolving]
  - Anal fissure [Recovering/Resolving]

NARRATIVE: CASE EVENT DATE: 20250616
